FAERS Safety Report 7960201-2 (Version None)
Quarter: 2011Q4

REPORT INFORMATION
  Report Type: 
  Country: None (occurrence: None)
  Receive Date: 20111206
  Receipt Date: 20111201
  Transmission Date: 20120403
  Serious: Yes (Life-Threatening, Other)
  Sender: FDA-Public Use
  Company Number: PHHY2011CA103772

PATIENT
  Sex: Male

DRUGS (3)
  1. CLOZARIL [Suspect]
     Indication: SCHIZOPHRENIA
     Dosage: 600 MG, DAILY
     Dates: start: 20110124, end: 20111124
  2. ABILIFY [Concomitant]
     Dosage: 3 MG, DAILY
  3. ATIVAN [Concomitant]
     Dosage: 1 MG TID AND 1 MG QHS PRN

REACTIONS (2)
  - MYOCARDIAL INFARCTION [None]
  - ANTIPSYCHOTIC DRUG LEVEL INCREASED [None]
